FAERS Safety Report 9715284 (Version 2)
Quarter: 2013Q4

REPORT INFORMATION
  Report Type: Spontaneous
  Country: US (occurrence: US)
  Receive Date: 20131127
  Receipt Date: 20131217
  Transmission Date: 20140711
  Serious: Yes (Death, Hospitalization)
  Sender: FDA-Public Use
  Company Number: US-AMGEN-USASP2013082369

PATIENT
  Age: 79 Year
  Sex: Female
  Weight: 116.1 kg

DRUGS (9)
  1. PROLIA [Suspect]
     Indication: OSTEOPOROSIS
     Dosage: 60 MG, Q6MO
     Dates: start: 20130108
  2. CRESTOR [Concomitant]
     Indication: BLOOD CHOLESTEROL
     Dosage: 20/10, QD
     Route: 048
  3. FLUTICASONE [Concomitant]
     Indication: HYPERSENSITIVITY
     Dosage: 50 UNK, QD
     Route: 048
  4. TRIAMTERENE [Concomitant]
     Indication: HYPERTENSION
     Dosage: 325/25, QD
     Route: 048
  5. VITAMIN D                          /00107901/ [Concomitant]
     Indication: VITAMIN D DEFICIENCY
     Dosage: 50000 UNK, QD
     Route: 048
  6. ASPIRIN [Concomitant]
     Dosage: 81 MG, QD
     Route: 048
  7. PRILOSEC                           /00661201/ [Concomitant]
     Indication: GASTROOESOPHAGEAL REFLUX DISEASE
     Dosage: 20 MG, QD
     Route: 048
  8. TRAMADOL [Concomitant]
     Indication: OSTEOARTHRITIS
     Dosage: 50 MG, QHS
     Route: 048
  9. LISINOPRIL [Concomitant]
     Indication: HYPERTENSION
     Dosage: 20 MG, QD
     Route: 048

REACTIONS (2)
  - Ischaemic stroke [Fatal]
  - Incorrect route of drug administration [Unknown]
